FAERS Safety Report 15575365 (Version 2)
Quarter: 2018Q4

REPORT INFORMATION
  Report Type: Spontaneous
  Country: US (occurrence: US)
  Receive Date: 20181101
  Receipt Date: 20181115
  Transmission Date: 20190205
  Serious: Yes (Other)
  Sender: FDA-Public Use
  Company Number: US-PFIZER INC-2018446266

PATIENT
  Age: 35 Year
  Sex: Female

DRUGS (10)
  1. KETOCONAZOLE. [Suspect]
     Active Substance: KETOCONAZOLE
     Indication: PITUITARY-DEPENDENT CUSHING^S SYNDROME
  2. TEMOZOLOMIDE. [Suspect]
     Active Substance: TEMOZOLOMIDE
     Indication: PITUITARY TUMOUR BENIGN
     Dosage: UNK, CYCLIC (DISCONTINUED AFTER FOUR CYCLES)
  3. CABERGOLINE. [Suspect]
     Active Substance: CABERGOLINE
     Indication: PITUITARY TUMOUR BENIGN
     Dosage: UNK, CYCLIC (DISCONTINUED AFTER FOUR CYCLES)
  4. CAPECITABINE. [Suspect]
     Active Substance: CAPECITABINE
     Indication: PITUITARY TUMOUR BENIGN
     Dosage: UNK, CYCLIC (DISCONTINUED AFTER FOUR CYCLES)
  5. CABERGOLINE. [Suspect]
     Active Substance: CABERGOLINE
     Indication: PITUITARY-DEPENDENT CUSHING^S SYNDROME
  6. PASIREOTIDE. [Suspect]
     Active Substance: PASIREOTIDE
     Indication: PITUITARY TUMOUR BENIGN
     Dosage: UNK, CYCLIC (DISCONTINUED AFTER FOUR CYCLES)
  7. KETOCONAZOLE. [Suspect]
     Active Substance: KETOCONAZOLE
     Indication: PITUITARY TUMOUR BENIGN
     Dosage: UNK, CYCLIC (DISCONTINUED AFTER FOUR CYCLES)
  8. CAPECITABINE. [Suspect]
     Active Substance: CAPECITABINE
     Indication: PITUITARY-DEPENDENT CUSHING^S SYNDROME
  9. PASIREOTIDE. [Suspect]
     Active Substance: PASIREOTIDE
     Indication: PITUITARY-DEPENDENT CUSHING^S SYNDROME
  10. TEMOZOLOMIDE. [Suspect]
     Active Substance: TEMOZOLOMIDE
     Indication: PITUITARY-DEPENDENT CUSHING^S SYNDROME

REACTIONS (2)
  - Drug intolerance [Unknown]
  - Thrombocytopenia [Unknown]
